FAERS Safety Report 9974926 (Version 1)
Quarter: 2014Q1

REPORT INFORMATION
  Report Type: Spontaneous
  Country: US (occurrence: US)
  Receive Date: 20140306
  Receipt Date: 20140306
  Transmission Date: 20141002
  Serious: No
  Sender: FDA-Public Use
  Company Number: US-ABBVIE-13P-163-1160733-00

PATIENT
  Age: 75 Year
  Sex: Female
  Weight: 48.12 kg

DRUGS (3)
  1. HUMIRA [Suspect]
     Indication: CROHN^S DISEASE
     Dates: start: 201206, end: 201206
  2. HUMIRA [Suspect]
     Dates: start: 201206, end: 201206
  3. HUMIRA [Suspect]
     Dates: start: 201207

REACTIONS (3)
  - Wrong technique in drug usage process [Recovered/Resolved]
  - Injection site haemorrhage [Recovered/Resolved]
  - Injection site pain [Recovered/Resolved]
